FAERS Safety Report 25746441 (Version 1)
Quarter: 2025Q3

REPORT INFORMATION
  Report Type: Other
  Country: CN (occurrence: CN)
  Receive Date: 20250901
  Receipt Date: 20250901
  Transmission Date: 20251020
  Serious: Yes (Death, Hospitalization)
  Sender: ANI
  Company Number: CN-ANIPHARMA-024315

PATIENT
  Age: 41 Year
  Sex: Male

DRUGS (7)
  1. LACTULOSE [Suspect]
     Active Substance: LACTULOSE
     Indication: Hyperammonaemic encephalopathy
  2. MANNITOL [Concomitant]
     Active Substance: MANNITOL
     Indication: Hyperammonaemic encephalopathy
  3. DEXTROSE [Concomitant]
     Active Substance: DEXTROSE MONOHYDRATE
     Indication: Hyperammonaemic encephalopathy
  4. ARGININE [Concomitant]
     Active Substance: ARGININE
     Indication: Hyperammonaemic encephalopathy
  5. SMECTA [Concomitant]
     Active Substance: MONTMORILLONITE
     Indication: Hyperammonaemic encephalopathy
  6. METHYLPREDNISOLONE [Concomitant]
     Active Substance: METHYLPREDNISOLONE
     Indication: Hyperammonaemic encephalopathy
  7. immune-globulin [Concomitant]
     Indication: Hyperammonaemic encephalopathy

REACTIONS (1)
  - Drug ineffective [Fatal]
